FAERS Safety Report 5345900-3 (Version None)
Quarter: 2007Q2

REPORT INFORMATION
  Report Type: 
  Country: None (occurrence: None)
  Receive Date: 20070605
  Receipt Date: 20070531
  Transmission Date: 20071010
  Serious: Yes (Disabling, Other)
  Sender: FDA-Public Use
  Company Number: A0651396A

PATIENT
  Age: 55 Year
  Sex: Female
  Weight: 85 kg

DRUGS (3)
  1. LAMICTAL [Suspect]
     Dosage: 150MG UNKNOWN
     Route: 048
  2. MAXALT [Concomitant]
  3. NEURONTIN [Concomitant]
     Dosage: 600MG TWICE PER DAY

REACTIONS (4)
  - HEPATIC ENZYME INCREASED [None]
  - MALAISE [None]
  - PYREXIA [None]
  - STEVENS-JOHNSON SYNDROME [None]
